FAERS Safety Report 9472593 (Version 1)
Quarter: 2013Q3

REPORT INFORMATION
  Report Type: Spontaneous
  Country: US (occurrence: US)
  Receive Date: 20130823
  Receipt Date: 20130823
  Transmission Date: 20140515
  Serious: Yes (Hospitalization, Other)
  Sender: FDA-Public Use
  Company Number: US-UCBSA-095763

PATIENT
  Sex: Female

DRUGS (2)
  1. VIMPAT [Suspect]
     Indication: CONVULSION
  2. VIMPAT [Suspect]
     Indication: CONVULSION
     Dosage: DOSE INCREASED

REACTIONS (3)
  - Convulsion [Unknown]
  - Decreased appetite [Recovering/Resolving]
  - Anticonvulsant drug level increased [Unknown]
